FAERS Safety Report 25324092 (Version 1)
Quarter: 2025Q2

REPORT INFORMATION
  Report Type: Spontaneous
  Country: US (occurrence: None)
  Receive Date: 20250515
  Receipt Date: 20250515
  Transmission Date: 20250716
  Serious: Yes (Life-Threatening, Hospitalization, Disabling, Other)
  Sender: FDA-CTU
  Company Number: None

PATIENT
  Age: 27 Year
  Sex: Female
  Weight: 85.5 kg

DRUGS (4)
  1. LEXAPRO [Suspect]
     Active Substance: ESCITALOPRAM OXALATE
     Indication: Depression
     Dosage: FREQUENCY : AT BEDTIME;?
     Route: 048
  2. PROZAC [Suspect]
     Active Substance: FLUOXETINE HYDROCHLORIDE
     Indication: Depression
     Dosage: FREQUENCY : AT BEDTIME;?
     Route: 048
  3. PROPRANOLOL [Concomitant]
     Active Substance: PROPRANOLOL HYDROCHLORIDE
  4. UNSPECIFIED INGREDIENT [Concomitant]
     Active Substance: UNSPECIFIED INGREDIENT

REACTIONS (19)
  - Paraesthesia [None]
  - Burning sensation [None]
  - Pseudostroke [None]
  - Feeling abnormal [None]
  - Vomiting [None]
  - Panic attack [None]
  - Anxiety [None]
  - Agoraphobia [None]
  - Suicidal ideation [None]
  - General physical health deterioration [None]
  - Nervous system disorder [None]
  - Drug intolerance [None]
  - Food intolerance [None]
  - Postural orthostatic tachycardia syndrome [None]
  - Migraine [None]
  - Nausea [None]
  - Therapy cessation [None]
  - Impaired quality of life [None]
  - Drug ineffective [None]

NARRATIVE: CASE EVENT DATE: 20210930
